FAERS Safety Report 25635155 (Version 1)
Quarter: 2025Q3

REPORT INFORMATION
  Report Type: Spontaneous
  Country: CH (occurrence: CH)
  Receive Date: 20250802
  Receipt Date: 20250802
  Transmission Date: 20251021
  Serious: Yes (Other)
  Sender: AMNEAL
  Company Number: CH-AMNEAL PHARMACEUTICALS-2025-AMRX-02916

PATIENT
  Age: 44 Year

DRUGS (1)
  1. TESTOSTERONE [Suspect]
     Active Substance: TESTOSTERONE
     Indication: Product used for unknown indication
     Route: 058

REACTIONS (3)
  - Toxic cardiomyopathy [Recovered/Resolved]
  - Renal failure [Unknown]
  - Polycythaemia [Unknown]
